FAERS Safety Report 6736682-9 (Version None)
Quarter: 2010Q2

REPORT INFORMATION
  Report Type: 
  Country: None (occurrence: None)
  Receive Date: 20100521
  Receipt Date: 20100510
  Transmission Date: 20101027
  Serious: Yes (Hospitalization, Other)
  Sender: FDA-Public Use
  Company Number: PHHY2010FR16504

PATIENT
  Sex: Male
  Weight: 43 kg

DRUGS (2)
  1. EXJADE [Suspect]
     Indication: CONGENITAL APLASTIC ANAEMIA
     Dosage: 1000 MG DAILY
     Route: 048
     Dates: start: 20030813, end: 20100401
  2. RITALIN [Concomitant]
     Indication: PSYCHOMOTOR HYPERACTIVITY
     Dosage: 10 MG, BID

REACTIONS (10)
  - BLOOD URINE PRESENT [None]
  - CONSTIPATION [None]
  - DYSURIA [None]
  - MICTURITION URGENCY [None]
  - PAIN [None]
  - RENAL SURGERY [None]
  - URETHRITIS [None]
  - URINARY RETENTION [None]
  - URINARY TRACT DISORDER [None]
  - URINE FLOW DECREASED [None]
